FAERS Safety Report 9670162 (Version 1)
Quarter: 2013Q4

REPORT INFORMATION
  Report Type: Spontaneous
  Country: US (occurrence: None)
  Receive Date: 20131024
  Receipt Date: 20131024
  Transmission Date: 20140711
  Serious: Yes (Hospitalization)
  Sender: FDA-Public Use
  Company Number: 2011029523

PATIENT
  Sex: Female
  Weight: 63.5 kg

DRUGS (3)
  1. HIZENTRA (IMMUNOGLOBULIN HUMAN NORMAL) [Suspect]
     Indication: HYPOGAMMAGLOBULINAEMIA
     Dosage: (10 G 1X/WEEK, 2 GM 10 ML VIAL; 50 ML IN 2-4 SITES OVER 1-2 HOURS SUBCUTANEUOS)
     Route: 058
     Dates: start: 20120611
  2. HIZENTRA (IMMUNOGLOBULIN HUMAN NORMAL) [Suspect]
     Indication: CHRONIC LYMPHOCYTIC LEUKAEMIA
     Dosage: (10 G 1X/WEEK, 2 GM 10 ML VIAL; 50 ML IN 2-4 SITES OVER 1-2 HOURS SUBCUTANEUOS)
     Route: 058
     Dates: start: 20120611
  3. HIZENTRA (IMMUNOGLOBULIN HUMAN NORMAL) [Suspect]
     Indication: IMMUNODEFICIENCY COMMON VARIABLE
     Dosage: (10 G 1X/WEEK, 2 GM 10 ML VIAL; 50 ML IN 2-4 SITES OVER 1-2 HOURS SUBCUTANEUOS)
     Route: 058
     Dates: start: 20120611

REACTIONS (4)
  - Infusion site erythema [None]
  - Infusion site pruritus [None]
  - Diverticulitis [None]
  - Fatigue [None]
